FAERS Safety Report 9285645 (Version 3)
Quarter: 2013Q2

REPORT INFORMATION
  Report Type: Report from Study
  Country: US (occurrence: US)
  Receive Date: 20130513
  Receipt Date: 20130607
  Transmission Date: 20140414
  Serious: No
  Sender: FDA-Public Use
  Company Number: US-VERTEX PHARMACEUTICALS INC-2013-005895

PATIENT
  Age: 44 Year
  Sex: Female

DRUGS (16)
  1. VX-950 (TELAPREVIR) [Suspect]
     Indication: HEPATITIS C
     Dosage: 750 MG, TID
     Route: 048
     Dates: start: 20130302, end: 20130525
  2. PEGASYS [Suspect]
     Indication: HEPATITIS C
     Dosage: 180 ?G, QW
     Route: 058
     Dates: start: 20130302
  3. RIBAVIRIN [Suspect]
     Indication: HEPATITIS C
     Dosage: 600 MG, BID
     Route: 048
     Dates: start: 20130302
  4. AMLODIPINE [Concomitant]
     Dosage: 10 MG, UNK
  5. DIAZEPAM [Concomitant]
     Dosage: 10 MG, UNK
  6. GABAPENTIN [Concomitant]
     Dosage: 300 MG, UNK
  7. HYDROCODONE [Concomitant]
     Dosage: 10/325
  8. HYDROMORPHONE [Concomitant]
     Dosage: 8 MG, UNK
  9. LISINOPRIL [Concomitant]
     Dosage: 40 MG, UNK
  10. MAXALT [Concomitant]
     Dosage: 10 MG, UNK
  11. MORPHINE [Concomitant]
  12. ONDANSETRON [Concomitant]
     Dosage: 8 MG, UNK
  13. OXYCODONE [Concomitant]
     Dosage: 5/325
  14. PAROXETINE [Concomitant]
     Dosage: 40 MG, UNK
  15. PROMETHAZINE [Concomitant]
     Dosage: 25 MG, UNK
  16. ZOLPIDEM [Concomitant]
     Dosage: 10 MG, UNK

REACTIONS (3)
  - White blood cell count decreased [Not Recovered/Not Resolved]
  - Bronchitis [Recovered/Resolved]
  - Influenza like illness [Not Recovered/Not Resolved]
